FAERS Safety Report 4776290-2 (Version None)
Quarter: 2005Q3

REPORT INFORMATION
  Report Type: 
  Country: None (occurrence: None)
  Receive Date: 20050922
  Receipt Date: 20050912
  Transmission Date: 20060218
  Serious: Yes (Hospitalization)
  Sender: FDA-Public Use
  Company Number: PHRM2005FR02436

PATIENT
  Age: 46 Year
  Sex: Male

DRUGS (9)
  1. SKENAN [Concomitant]
     Route: 048
  2. OXYNORM [Concomitant]
     Route: 048
  3. NEORECORMON ^ROCHE^ [Suspect]
     Dosage: UNK, UNK
     Route: 058
  4. BI-PROFENID [Suspect]
     Indication: METASTASES TO BONE
     Dosage: UNK, UNK
     Route: 048
  5. SERESTA [Suspect]
     Route: 048
     Dates: start: 20050101
  6. HYCAMTIN [Suspect]
     Indication: SMALL CELL LUNG CANCER METASTATIC
     Route: 042
     Dates: start: 20050502, end: 20050627
  7. DURAGESIC-100 [Suspect]
     Indication: LUNG NEOPLASM MALIGNANT
     Route: 062
  8. ZOMETA [Suspect]
     Indication: METASTASES TO BONE
     Dosage: 4 MG, TIW
     Route: 042
     Dates: start: 20050321, end: 20050530
  9. CISPLATIN + ETOPOSIDE [Concomitant]
     Indication: SMALL CELL LUNG CANCER METASTATIC
     Dates: start: 20050501, end: 20050503

REACTIONS (5)
  - ASEPTIC NECROSIS BONE [None]
  - BONE FISSURE [None]
  - MOUTH ULCERATION [None]
  - MUSCULOSKELETAL DISCOMFORT [None]
  - PAIN IN JAW [None]
